FAERS Safety Report 7735674-0 (Version None)
Quarter: 2011Q3

REPORT INFORMATION
  Report Type: 
  Country: None (occurrence: None)
  Receive Date: 20110907
  Receipt Date: 20110824
  Transmission Date: 20111222
  Serious: Yes (Other)
  Sender: FDA-Public Use
  Company Number: GB-MYLANLABS-2011S1017597

PATIENT
  Age: 8 Year
  Sex: Female

DRUGS (1)
  1. TACROLIMUS [Suspect]
     Indication: LIVER AND SMALL INTESTINE TRANSPLANT

REACTIONS (5)
  - JUGULAR VEIN THROMBOSIS [None]
  - PELVIC VENOUS THROMBOSIS [None]
  - SMALL INTESTINAL OBSTRUCTION [None]
  - COOMBS POSITIVE HAEMOLYTIC ANAEMIA [None]
  - AXILLARY VEIN THROMBOSIS [None]
